FAERS Safety Report 25601816 (Version 2)
Quarter: 2025Q3

REPORT INFORMATION
  Report Type: Spontaneous
  Country: US (occurrence: US)
  Receive Date: 20250724
  Receipt Date: 20250825
  Transmission Date: 20251020
  Serious: No
  Sender: PFIZER
  Company Number: US-PFIZER INC-PV202500088939

PATIENT
  Age: 61 Year
  Sex: Female

DRUGS (10)
  1. PREMARIN [Suspect]
     Active Substance: ESTROGENS, CONJUGATED
     Dosage: 0.3 MG, 1X/DAY
     Route: 048
     Dates: start: 20250612
  2. ONE DAILY WOMEN^S [ASCORBIC ACID;BETACAROTENE;BIOTIN;CALCIUM PANTOTHEN [Concomitant]
  3. PANTOTHENIC ACID [Concomitant]
     Active Substance: PANTOTHENIC ACID
  4. CYANOCOBALAMIN\FOLIC ACID [Concomitant]
     Active Substance: CYANOCOBALAMIN\FOLIC ACID
  5. VITAMIN D3 [Concomitant]
     Active Substance: CHOLECALCIFEROL
  6. ASCORBIC ACID [Concomitant]
     Active Substance: ASCORBIC ACID
  7. CARNITINE [Concomitant]
     Active Substance: CARNITINE
  8. ZINC [Concomitant]
     Active Substance: ZINC
  9. RETINOL [Concomitant]
     Active Substance: RETINOL
  10. MAGNESIUM [Concomitant]
     Active Substance: MAGNESIUM

REACTIONS (2)
  - Erythema [Unknown]
  - Skin disorder [Unknown]

NARRATIVE: CASE EVENT DATE: 20250617
